FAERS Safety Report 7320428 (Version 31)
Quarter: 2012Q4

REPORT INFORMATION
  Report Type: 
  Country: CA (occurrence: CA)
  Receive Date: 20100315
  Receipt Date: 20120902
  Transmission Date: 20130627
  Serious: Yes (Other)
  Sender: FDA-Public Use
  Company Number: PHHY2010CA00663

PATIENT
  Age: 65 Year
  Sex: Male

DRUGS (3)
  1. ZOMETA [Suspect]
     Indication: PROSTATE CANCER METASTATIC
     Dosage: 4 mg, QMO
     Route: 042
     Dates: start: 20091113
  2. SLOW-K [Concomitant]
  3. VITAMIN K [Concomitant]

REACTIONS (17)
  - Blood testosterone decreased [Unknown]
  - Dementia Alzheimer^s type [Unknown]
  - Mental impairment [Not Recovered/Not Resolved]
  - Prostatic specific antigen increased [Unknown]
  - Blood pressure increased [Unknown]
  - Weight decreased [Unknown]
  - Hypoglycaemia [Unknown]
  - Peripheral coldness [Unknown]
  - Dry skin [Unknown]
  - Arthralgia [Not Recovered/Not Resolved]
  - Pain [Recovered/Resolved]
  - Asthenia [Unknown]
  - Tenderness [Unknown]
  - Blood potassium decreased [Unknown]
  - Back pain [Not Recovered/Not Resolved]
  - Blood calcium increased [Unknown]
  - Somnolence [Unknown]
